FAERS Safety Report 25777292 (Version 1)
Quarter: 2025Q3

REPORT INFORMATION
  Report Type: Report from Study
  Country: US (occurrence: US)
  Receive Date: 20250909
  Receipt Date: 20250909
  Transmission Date: 20251021
  Serious: No
  Sender: ACADIA PHARMACEUTICALS
  Company Number: US-ACADIA PHARMACEUTICALS INC.-ACA-2025-PIM-009883

PATIENT
  Sex: Male

DRUGS (14)
  1. NUPLAZID [Suspect]
     Active Substance: PIMAVANSERIN TARTRATE
     Indication: Parkinson^s disease
     Dosage: 34 MILLIGRAM, QD
     Route: 048
     Dates: start: 20241026
  2. BOTOX [Concomitant]
     Active Substance: ONABOTULINUMTOXINA
  3. QUETIAPINE [Concomitant]
     Active Substance: QUETIAPINE
  4. ALBUTEROL [Concomitant]
     Active Substance: ALBUTEROL
  5. ASPIRIN [Concomitant]
     Active Substance: ASPIRIN
  6. ATROVENT HFA [Concomitant]
     Active Substance: IPRATROPIUM BROMIDE
  7. CARBIDOPA ANHYDROUS [Concomitant]
     Active Substance: CARBIDOPA ANHYDROUS
  8. MIRTAZAPINE [Concomitant]
     Active Substance: MIRTAZAPINE
  9. NITROGLYCERIN [Concomitant]
     Active Substance: NITROGLYCERIN
  10. NOVOLOG [Concomitant]
     Active Substance: INSULIN ASPART
  11. OZEMPIC [Concomitant]
     Active Substance: SEMAGLUTIDE
  12. SINEMET [Concomitant]
     Active Substance: CARBIDOPA\LEVODOPA
  13. TAMSULOSIN [Concomitant]
     Active Substance: TAMSULOSIN
  14. TRESIBA [Concomitant]
     Active Substance: INSULIN DEGLUDEC

REACTIONS (1)
  - Muscle spasticity [Not Recovered/Not Resolved]
